FAERS Safety Report 16064381 (Version 1)
Quarter: 2019Q1

REPORT INFORMATION
  Report Type: Report from Study
  Country: US (occurrence: US)
  Receive Date: 20190312
  Receipt Date: 20190312
  Transmission Date: 20190418
  Serious: Yes (Life-Threatening, Other)
  Sender: FDA-Public Use
  Company Number: US-SHIRE-US201604642

PATIENT
  Age: 49 Year
  Sex: Female
  Weight: 51.25 kg

DRUGS (10)
  1. TPN [Concomitant]
     Active Substance: AMINO ACIDS\DEXTROSE\ELECTROLYTES NOS\SOYBEAN OIL
     Indication: NUTRITIONAL SUPPLEMENTATION
     Dosage: 1.1 L, 3 DAYS A WEEK
     Route: 051
     Dates: start: 20150522
  2. TPN [Concomitant]
     Active Substance: AMINO ACIDS\DEXTROSE\ELECTROLYTES NOS\SOYBEAN OIL
     Dosage: 1.5 L, 2 DAYS A WEEK
     Route: 051
     Dates: start: 20141231, end: 20150406
  3. MILK THISTLE [Concomitant]
     Active Substance: DIETARY SUPPLEMENT\HERBALS\MILK THISTLE
     Indication: PHYTOTHERAPY
     Dosage: UNK, 1X/DAY:QD
     Route: 048
     Dates: start: 20140711
  4. TPN [Concomitant]
     Active Substance: AMINO ACIDS\DEXTROSE\ELECTROLYTES NOS\SOYBEAN OIL
     Dosage: 0.78 L, 5 DAYS A WEEK
     Route: 051
     Dates: start: 20150407, end: 20150521
  5. TPN [Concomitant]
     Active Substance: AMINO ACIDS\DEXTROSE\ELECTROLYTES NOS\SOYBEAN OIL
     Dosage: UNK, UNKNOWN
     Route: 051
     Dates: start: 2009
  6. KETAMINE HCL [Concomitant]
     Active Substance: KETAMINE HYDROCHLORIDE
     Indication: PAIN
     Dosage: 100 DF, 1X/DAY:QD
     Route: 061
  7. MULTIVITAMIN                       /00097801/ [Concomitant]
     Active Substance: VITAMINS
     Indication: HYPOVITAMINOSIS
     Dosage: UNK, 1X/DAY:QD
     Route: 048
     Dates: start: 20140711
  8. TEDUGLUTIDE [Suspect]
     Active Substance: TEDUGLUTIDE
     Indication: SHORT-BOWEL SYNDROME
     Dosage: 2.8 MG, 3 TIMES PER WEEK
     Route: 058
     Dates: start: 20150202
  9. TEDUGLUTIDE [Suspect]
     Active Substance: TEDUGLUTIDE
     Dosage: 2.8 MG, 1X/DAY:QD
     Route: 058
     Dates: start: 20131020, end: 20150202
  10. PREVACID [Concomitant]
     Active Substance: LANSOPRAZOLE
     Indication: GASTROOESOPHAGEAL REFLUX DISEASE
     Dosage: 30 MG, 1X/DAY:QD
     Route: 048
     Dates: start: 20130124

REACTIONS (1)
  - Hypokalaemia [Recovered/Resolved]

NARRATIVE: CASE EVENT DATE: 20150623
